FAERS Safety Report 23388565 (Version 2)
Quarter: 2024Q1

REPORT INFORMATION
  Report Type: Spontaneous
  Country: CZ (occurrence: None)
  Receive Date: 20240110
  Receipt Date: 20240130
  Transmission Date: 20240410
  Serious: Yes (Hospitalization, Other)
  Sender: FDA-Public Use
  Company Number: 2024A004876

PATIENT
  Sex: Male

DRUGS (1)
  1. DAPAGLIFLOZIN [Suspect]
     Active Substance: DAPAGLIFLOZIN
     Route: 048

REACTIONS (10)
  - Genital swelling [Unknown]
  - Neoplasm malignant [Unknown]
  - Acquired phimosis [Unknown]
  - Abdominal distension [Unknown]
  - Muscular weakness [Not Recovered/Not Resolved]
  - Illness [Unknown]
  - Feeling abnormal [Unknown]
  - Ocular discomfort [Unknown]
  - Eating disorder [Unknown]
  - Lethargy [Unknown]
